FAERS Safety Report 11317612 (Version 1)
Quarter: 2015Q3

REPORT INFORMATION
  Report Type: Spontaneous
  Country: US (occurrence: None)
  Receive Date: 20150727
  Receipt Date: 20150727
  Transmission Date: 20151125
  Serious: Yes (Disabling)
  Sender: FDA-Public Use
  Company Number: None

PATIENT
  Age: 43 Year
  Sex: Male
  Weight: 77.11 kg

DRUGS (8)
  1. ATACAND [Concomitant]
     Active Substance: CANDESARTAN CILEXETIL
  2. PROTONIX [Concomitant]
     Active Substance: PANTOPRAZOLE SODIUM
  3. METHYL FOLATE [Concomitant]
  4. METHYL B 12 [Concomitant]
  5. NAC [Concomitant]
  6. PROHANCE [Suspect]
     Active Substance: GADOTERIDOL
  7. ALLERGY DESENSITIZATION SHOT [Concomitant]
  8. CILANTRO JUICE SMOOTHIE [Concomitant]

REACTIONS (9)
  - Hypoaesthesia [None]
  - Myalgia [None]
  - Headache [None]
  - Back pain [None]
  - Confusional state [None]
  - Musculoskeletal stiffness [None]
  - Arthralgia [None]
  - Muscular weakness [None]
  - Fatigue [None]

NARRATIVE: CASE EVENT DATE: 20150710
